FAERS Safety Report 5163457-7 (Version None)
Quarter: 2006Q4

REPORT INFORMATION
  Report Type: 
  Country: None (occurrence: None)
  Receive Date: 20061124
  Receipt Date: 20061114
  Transmission Date: 20070319
  Serious: Yes (Other)
  Sender: FDA-Public Use
  Company Number: 2006128467

PATIENT
  Age: 81 Year
  Sex: Male
  Weight: 80.7403 kg

DRUGS (14)
  1. SUTENT [Suspect]
     Indication: PROSTATE CANCER
     Dosage: 50 MG (50 MG, 1 IN 1 D), ORAL
     Route: 048
     Dates: start: 20060913
  2. HYDROCHLOROTHIAZIDE [Concomitant]
  3. FERROUS SULFATE TAB [Concomitant]
  4. GLUCOSAMINE (GLUCOSAMINE) [Concomitant]
  5. ALBUTEROL [Concomitant]
  6. CYCLOBENZAPRINE HCL [Concomitant]
  7. TYLENOL PM (DIPHENHYDRAMINE, PARACETAMOL0 [Concomitant]
  8. RANITIDINE [Concomitant]
  9. OXYMETAZOLINE (OXYMETAZOLINE) [Concomitant]
  10. LUPRON [Concomitant]
  11. VICODIN [Concomitant]
  12. KLOR-CON [Concomitant]
  13. SPIRIVA [Concomitant]
  14. GAVISCON [Concomitant]

REACTIONS (2)
  - GASTROENTERITIS RADIATION [None]
  - PROCTALGIA [None]
